FAERS Safety Report 25838016 (Version 1)
Quarter: 2025Q3

REPORT INFORMATION
  Report Type: Spontaneous
  Country: US (occurrence: US)
  Receive Date: 20250923
  Receipt Date: 20250923
  Transmission Date: 20251020
  Serious: Yes (Hospitalization, Other)
  Sender: AMGEN
  Company Number: US-AMGEN-USASP2025186677

PATIENT

DRUGS (1)
  1. TEPROTUMUMAB [Suspect]
     Active Substance: TEPROTUMUMAB
     Indication: Endocrine ophthalmopathy
     Route: 040

REACTIONS (43)
  - Hyperglycaemia [Unknown]
  - Hyponatraemia [Unknown]
  - Syncope [Unknown]
  - Anxiety [Recovered/Resolved]
  - Cognitive disorder [Unknown]
  - Depression [Unknown]
  - Cystitis [Recovered/Resolved]
  - Fatigue [Unknown]
  - Hypokalaemia [Unknown]
  - Deafness [Unknown]
  - Endocrine ophthalmopathy [Unknown]
  - Hypoacusis [Unknown]
  - Alopecia [Unknown]
  - Ear disorder [Unknown]
  - Muscle spasms [Unknown]
  - Weight decreased [Unknown]
  - Appetite disorder [Unknown]
  - Autophony [Unknown]
  - Tinnitus [Unknown]
  - Balance disorder [Unknown]
  - Inner ear disorder [Unknown]
  - Onycholysis [Unknown]
  - Hypertension [Unknown]
  - Dry skin [Unknown]
  - Rash [Unknown]
  - Pruritus [Unknown]
  - Soft tissue disorder [Unknown]
  - Diarrhoea [Unknown]
  - Nausea [Unknown]
  - Dysphagia [Unknown]
  - Constipation [Unknown]
  - Headache [Unknown]
  - Dysgeusia [Unknown]
  - Disorientation [Unknown]
  - Amnesia [Unknown]
  - Loss of personal independence in daily activities [Unknown]
  - Arthralgia [Unknown]
  - Metabolic disorder [Unknown]
  - Malnutrition [Unknown]
  - Ear disorder [Unknown]
  - Thirst [Unknown]
  - Pollakiuria [Unknown]
  - Insomnia [Unknown]
